FAERS Safety Report 6248446-3 (Version None)
Quarter: 2009Q2

REPORT INFORMATION
  Report Type: 
  Country: None (occurrence: None)
  Receive Date: 20090625
  Receipt Date: 20090625
  Transmission Date: 20091009
  Serious: Yes (Other)
  Sender: FDA-Public Use
  Company Number: None

PATIENT
  Sex: Female
  Weight: 68.0396 kg

DRUGS (2)
  1. ACTONEL [Suspect]
     Indication: OSTEOPENIA
     Dosage: 75 MG ONCE EVERY 2 WKS
  2. ACTONEL [Suspect]
     Indication: OSTEOPOROSIS
     Dosage: 75 MG ONCE EVERY 2 WKS

REACTIONS (3)
  - DISCOMFORT [None]
  - DYSPEPSIA [None]
  - ERUCTATION [None]
